FAERS Safety Report 6607964-6 (Version None)
Quarter: 2010Q1

REPORT INFORMATION
  Report Type: 
  Country: None (occurrence: None)
  Receive Date: 20100301
  Receipt Date: 20100222
  Transmission Date: 20100710
  Serious: Yes (Hospitalization)
  Sender: FDA-Public Use
  Company Number: FR-KINGPHARMUSA00001-K201000191

PATIENT
  Age: 84 Year
  Sex: Female

DRUGS (10)
  1. ALTACE [Suspect]
     Indication: CARDIAC FAILURE
     Dosage: 1.25 MG, QD
     Route: 048
     Dates: end: 20091230
  2. ALTACE [Suspect]
     Dosage: 1.25 MG, QD
     Route: 048
     Dates: start: 20100101
  3. KARDEGIC [Concomitant]
     Dosage: UNK
     Dates: end: 20100106
  4. LASILIX [Concomitant]
     Dosage: UNK
  5. LEVOTHYROX [Concomitant]
     Dosage: UNK
  6. INSULIN DETEMIR [Concomitant]
     Dosage: UNK
  7. FERROUS SULFATE TAB [Concomitant]
     Dosage: UNK
     Dates: end: 20091230
  8. ZOPICLONE [Concomitant]
     Dosage: UNK
     Dates: end: 20091231
  9. SERESTA [Concomitant]
     Dosage: UNK
  10. ESOMEPRAZOLE [Concomitant]
     Dosage: UNK

REACTIONS (4)
  - BUNDLE BRANCH BLOCK LEFT [None]
  - CARDIAC FAILURE [None]
  - GENERAL PHYSICAL CONDITION ABNORMAL [None]
  - HYPERKALAEMIA [None]
